FAERS Safety Report 6120765-0 (Version None)
Quarter: 2009Q1

REPORT INFORMATION
  Report Type: 
  Country: None (occurrence: None)
  Receive Date: 20090317
  Receipt Date: 20090312
  Transmission Date: 20090719
  Serious: Yes (Hospitalization, Other)
  Sender: FDA-Public Use
  Company Number: US-BAYER-US-2007-041854

PATIENT
  Age: 58 Year
  Sex: Female
  Weight: 66 kg

DRUGS (25)
  1. CLIMARA [Suspect]
     Indication: MENOPAUSE
     Route: 062
     Dates: start: 19970522, end: 19990301
  2. CLIMARA [Suspect]
     Route: 062
     Dates: start: 19970314, end: 19970501
  3. HORMONES AND RELATED AGENTS [Suspect]
     Indication: HORMONE REPLACEMENT THERAPY
     Dates: start: 19770101
  4. PROPACET 100 [Concomitant]
     Indication: ARTHRALGIA
  5. ALPRAZOLAM [Concomitant]
  6. DILTIA XT [Concomitant]
     Dates: start: 19980110
  7. TRAZODONE HCL [Concomitant]
  8. CARAFATE [Concomitant]
  9. PREVACID [Concomitant]
  10. BETOPTIC S [Concomitant]
  11. PRILOSEC [Concomitant]
  12. ERYTHROMYCIN [Concomitant]
     Dates: start: 19970723
  13. ENDOTUSSIN [Concomitant]
     Dates: start: 19970723
  14. DOXYCYCLINE [Concomitant]
     Dates: start: 19970910
  15. PROCTOSOL-HC [Concomitant]
     Dates: start: 19970910
  16. ANUSOL-HC /USA/ [Concomitant]
     Dates: start: 19971024
  17. CLIDINIUM [Concomitant]
     Dates: start: 19971203
  18. TRIAMTERENE AND HYDROCHLOROTHIAZID ^HARRIS^ [Concomitant]
     Dates: start: 19980110
  19. METRONIDAZOLE [Concomitant]
     Dates: start: 19980512
  20. CHLORDIAZEPOXIDE W/CLIDINIUM BROMIDE [Concomitant]
     Dates: start: 19980626
  21. CIPRO [Concomitant]
     Dates: start: 19980909
  22. SULCRATE [Concomitant]
     Dates: start: 19981020
  23. DARVOCET-N 100 [Concomitant]
  24. CELEBREX [Concomitant]
     Dates: start: 19990301
  25. ASPIRIN [Concomitant]

REACTIONS (6)
  - ANGINA PECTORIS [None]
  - BREAST CANCER IN SITU [None]
  - HEART RATE INCREASED [None]
  - HEART VALVE INCOMPETENCE [None]
  - HYPERTENSION [None]
  - MENOPAUSAL SYMPTOMS [None]
